FAERS Safety Report 8710253 (Version 2)
Quarter: 2013Q4

REPORT INFORMATION
  Report Type: Report from Study
  Country: US (occurrence: US)
  Receive Date: 20120807
  Receipt Date: 20131031
  Transmission Date: 20140711
  Serious: Yes (Life-Threatening, Hospitalization)
  Sender: FDA-Public Use
  Company Number: US-009507513-1203USA03489

PATIENT
  Age: 69 Year
  Sex: Female
  Weight: 59.2 kg

DRUGS (18)
  1. VORINOSTAT [Suspect]
     Indication: DIFFUSE LARGE B-CELL LYMPHOMA
     Dosage: ON DAY 1-9
     Route: 048
     Dates: start: 20120206, end: 20120214
  2. VORINOSTAT [Suspect]
     Dosage: ON DAY 1-9
     Route: 048
     Dates: start: 20120228, end: 20120307
  3. VORINOSTAT [Suspect]
     Dosage: ON DAY 1-5
     Route: 048
     Dates: start: 20120710, end: 20120714
  4. RITUXIMAB [Suspect]
     Indication: DIFFUSE LARGE B-CELL LYMPHOMA
     Dosage: 375 MG/M2, ON DAY 3
     Route: 042
     Dates: start: 20120208, end: 20120208
  5. RITUXIMAB [Suspect]
     Dosage: 375 MG/M2, ON DAY 3
     Route: 042
     Dates: start: 20120301, end: 20120301
  6. RITUXIMAB [Suspect]
     Dosage: 375 MG/M2, ON DAY 3
     Route: 042
     Dates: start: 20120712, end: 20120712
  7. CYCLOPHOSPHAMIDE [Suspect]
     Indication: DIFFUSE LARGE B-CELL LYMPHOMA
     Dosage: OVER 30-60 MINUTES ON DAY 3
     Route: 042
     Dates: start: 20120208, end: 20120208
  8. CYCLOPHOSPHAMIDE [Suspect]
     Dosage: OVER 30-60 MINUTES ON DAY 3
     Route: 042
     Dates: start: 20120301, end: 20120301
  9. CYCLOPHOSPHAMIDE [Suspect]
     Dosage: OVER 30-60 MINUTES ON DAY 3
     Route: 042
     Dates: start: 20120712, end: 20120712
  10. DOXORUBICIN [Suspect]
     Indication: DIFFUSE LARGE B-CELL LYMPHOMA
     Dosage: 50 MG/M2, ON DAY 3
     Route: 042
     Dates: start: 20120208, end: 20120208
  11. DOXORUBICIN [Suspect]
     Dosage: 50 MG/M2, ON DAY 3
     Route: 042
     Dates: start: 20120301, end: 20120301
  12. DOXORUBICIN [Suspect]
     Dosage: 50 MG/M2, ON DAY 3
     Route: 042
     Dates: start: 20120712, end: 20120712
  13. VINCRISTINE SULFATE [Suspect]
     Indication: DIFFUSE LARGE B-CELL LYMPHOMA
     Dosage: 1.4 MG/M2, ON DAY 3
     Route: 042
     Dates: start: 20120208, end: 20120208
  14. VINCRISTINE SULFATE [Suspect]
     Dosage: 1.4 MG/M2, ON DAY 3
     Route: 042
     Dates: start: 20120301, end: 20120301
  15. VINCRISTINE SULFATE [Suspect]
     Dosage: 1.4 MG/M2, ON DAY 3
     Route: 042
     Dates: start: 20120712, end: 20120712
  16. PREDNISONE [Suspect]
     Indication: DIFFUSE LARGE B-CELL LYMPHOMA
     Dosage: 100 MG, QD ON DAYS 3-7
     Route: 048
     Dates: start: 20120208, end: 20120212
  17. PREDNISONE [Suspect]
     Dosage: 100 MG, QD ON DAYS 3-7
     Route: 048
     Dates: start: 20120301, end: 20120305
  18. PREDNISONE [Suspect]
     Dosage: 100 MG, QD ON DAYS 3-7
     Route: 048
     Dates: start: 20120712, end: 20120712

REACTIONS (4)
  - Lung infection [Recovered/Resolved]
  - Neutrophil count decreased [Recovered/Resolved]
  - Febrile neutropenia [Recovered/Resolved]
  - Febrile neutropenia [Recovered/Resolved]
